FAERS Safety Report 10005499 (Version 1)
Quarter: 2014Q1

REPORT INFORMATION
  Report Type: Spontaneous
  Country: US (occurrence: US)
  Receive Date: 20140313
  Receipt Date: 20140313
  Transmission Date: 20141002
  Serious: No
  Sender: FDA-Public Use
  Company Number: US-009507513-1403USA002457

PATIENT
  Sex: Female

DRUGS (2)
  1. COSOPT [Suspect]
     Indication: GLAUCOMA
     Dosage: 2 DROPS, BID
     Route: 047
     Dates: start: 201311
  2. METFORMIN [Concomitant]
     Dosage: UNK

REACTIONS (1)
  - Eye irritation [Unknown]
